FAERS Safety Report 10029292 (Version 1)
Quarter: 2014Q1

REPORT INFORMATION
  Report Type: Spontaneous
  Country: US (occurrence: US)
  Receive Date: 20140321
  Receipt Date: 20140321
  Transmission Date: 20141002
  Serious: Yes (Hospitalization)
  Sender: FDA-Public Use
  Company Number: PHHY2014US030330

PATIENT
  Age: 79 Year
  Sex: Male

DRUGS (1)
  1. NILOTINIB [Suspect]
     Indication: CHRONIC MYELOID LEUKAEMIA
     Dosage: 300 MG, BID
     Route: 048

REACTIONS (11)
  - Acute interstitial pneumonitis [Unknown]
  - Dyspnoea [Recovered/Resolved]
  - Crepitations [Unknown]
  - Pneumonia [Unknown]
  - Pulmonary alveolar haemorrhage [Unknown]
  - Tumour lysis syndrome [Unknown]
  - Renal failure acute [Recovering/Resolving]
  - Abdominal pain [Recovering/Resolving]
  - Blood creatinine increased [Recovering/Resolving]
  - Hyperuricaemia [Recovering/Resolving]
  - Blood uric acid increased [Recovering/Resolving]
